FAERS Safety Report 6844924-4 (Version None)
Quarter: 2010Q3

REPORT INFORMATION
  Report Type: 
  Country: None (occurrence: None)
  Receive Date: 20100715
  Receipt Date: 20100702
  Transmission Date: 20110219
  Serious: Yes (Hospitalization)
  Sender: FDA-Public Use
  Company Number: JP-AMGEN-US347537

PATIENT
  Sex: Female
  Weight: 67 kg

DRUGS (11)
  1. ENBREL [Suspect]
     Indication: RHEUMATOID ARTHRITIS
     Dosage: PREVIOUSLY ON LYOPHILIZED 25 MG  X2/WEEK
     Route: 058
     Dates: start: 20070823, end: 20080807
  2. ENBREL [Suspect]
     Dosage: SYRINGE-25 MG X 2/WEEK
     Route: 058
     Dates: start: 20080807, end: 20080831
  3. ENBREL [Suspect]
     Dosage: SYRINGE 25 MG X2/WEEK
     Route: 058
     Dates: start: 20080929
  4. PREDONINE [Suspect]
     Indication: INFLAMMATION
     Route: 048
     Dates: start: 20070806
  5. BASEN [Concomitant]
     Indication: DIABETES MELLITUS
     Route: 048
     Dates: start: 20070806
  6. MUCOSTA [Concomitant]
     Indication: PROPHYLAXIS AGAINST GASTROINTESTINAL ULCER
     Route: 048
     Dates: start: 20070806
  7. TAKEPRON [Concomitant]
     Indication: PROPHYLAXIS AGAINST GASTROINTESTINAL ULCER
     Route: 048
     Dates: start: 20070806
  8. AZULFIDINE [Concomitant]
     Indication: RHEUMATOID ARTHRITIS
     Route: 048
     Dates: start: 20070809
  9. INDOMETHACIN SODIUM [Concomitant]
     Indication: ANALGESIC THERAPY
     Route: 048
     Dates: start: 20070806
  10. BUCILLAMINE [Concomitant]
     Indication: RHEUMATOID ARTHRITIS
     Route: 048
     Dates: start: 20070806, end: 20081208
  11. LIPITOR [Concomitant]
     Indication: HYPERLIPIDAEMIA
     Route: 048
     Dates: start: 20070806

REACTIONS (1)
  - TENDON RUPTURE [None]
